FAERS Safety Report 6954197-X (Version None)
Quarter: 2010Q3

REPORT INFORMATION
  Report Type: 
  Country: None (occurrence: None)
  Receive Date: 20100829
  Receipt Date: 20100709
  Transmission Date: 20110219
  Serious: No
  Sender: FDA-Public Use
  Company Number: US-ABBOTT-10P-163-0656208-00

PATIENT
  Sex: Female
  Weight: 73.094 kg

DRUGS (6)
  1. NIASPAN [Suspect]
     Indication: PRODUCT USED FOR UNKNOWN INDICATION
     Dosage: AT BEDTIME, 3 TABLETS
     Dates: start: 20100401
  2. FISH OIL [Concomitant]
     Indication: PRODUCT USED FOR UNKNOWN INDICATION
  3. PREMADOL [Concomitant]
     Indication: PRODUCT USED FOR UNKNOWN INDICATION
  4. MULTI-VITAMINS [Concomitant]
     Indication: PRODUCT USED FOR UNKNOWN INDICATION
  5. VIT D [Concomitant]
     Indication: PRODUCT USED FOR UNKNOWN INDICATION
  6. ASPIRIN [Concomitant]
     Indication: PRODUCT USED FOR UNKNOWN INDICATION
     Dosage: 30 MINUTES BEFORE NIASPAN

REACTIONS (3)
  - CHILLS [None]
  - ERYTHEMA [None]
  - PRURITUS [None]
